FAERS Safety Report 15871328 (Version 2)
Quarter: 2019Q1

REPORT INFORMATION
  Report Type: Spontaneous
  Country: CA (occurrence: CA)
  Receive Date: 20190126
  Receipt Date: 20190220
  Transmission Date: 20190417
  Serious: Yes (Other)
  Sender: FDA-Public Use
  Company Number: CA-AMGEN-CANSP2019012099

PATIENT
  Sex: Female
  Weight: 59 kg

DRUGS (9)
  1. CORTISONE [Concomitant]
     Active Substance: CORTISONE\HYDROCORTISONE
     Dosage: UNK
  2. RITUXAN [Suspect]
     Active Substance: RITUXIMAB
     Indication: RHEUMATOID ARTHRITIS
     Dosage: 1000 MG, UNK
     Route: 042
  3. DIPHENHYDRAMINE HYDROCHLORIDE. [Concomitant]
     Active Substance: DIPHENHYDRAMINE HYDROCHLORIDE
     Indication: PREMEDICATION
     Dosage: 50 MG, UNK
     Route: 048
  4. PROLIA [Suspect]
     Active Substance: DENOSUMAB
     Indication: PRODUCT USED FOR UNKNOWN INDICATION
     Dosage: UNK, Q6MO
     Route: 058
  5. AMOXICILLIN TRIHYDRATE AND POTASSIUM CLAVULAN [Suspect]
     Active Substance: AMOXICILLIN\CLAVULANATE POTASSIUM
     Indication: PRODUCT USED FOR UNKNOWN INDICATION
     Dosage: UNK
     Route: 065
  6. ACETAMINOPHEN. [Concomitant]
     Active Substance: ACETAMINOPHEN
     Indication: PREMEDICATION
     Dosage: 650 MG, UNK
     Route: 048
  7. MEPREDNISONE [Concomitant]
     Active Substance: MEPREDNISONE
     Indication: PREMEDICATION
     Dosage: 100 MG, UNK
     Route: 042
  8. PREDNISOLONE. [Concomitant]
     Active Substance: PREDNISOLONE
     Indication: PREMEDICATION
     Dosage: 50 MG, UNK
     Route: 042
  9. METHYLPREDNISOLONE. [Concomitant]
     Active Substance: METHYLPREDNISOLONE
     Indication: PREMEDICATION
     Dosage: 100 MG, Q2WK
     Route: 042

REACTIONS (10)
  - Liver function test abnormal [Recovered/Resolved]
  - Weight decreased [Recovered/Resolved]
  - Pneumonia [Recovered/Resolved]
  - Jaundice [Recovered/Resolved]
  - Blood immunoglobulin M decreased [Recovered/Resolved]
  - Influenza [Recovered/Resolved]
  - Blood immunoglobulin G decreased [Recovered/Resolved]
  - Jaw disorder [Recovered/Resolved]
  - Nausea [Recovered/Resolved]
  - Drug hypersensitivity [Recovered/Resolved]
